FAERS Safety Report 6980959-9 (Version None)
Quarter: 2010Q3

REPORT INFORMATION
  Report Type: 
  Country: None (occurrence: None)
  Receive Date: 20100914
  Receipt Date: 20100903
  Transmission Date: 20110219
  Serious: Yes (Other)
  Sender: FDA-Public Use
  Company Number: A0880806A

PATIENT
  Sex: Male

DRUGS (1)
  1. AVANDIA [Suspect]
     Indication: DIABETES MELLITUS
     Route: 048
     Dates: end: 20020801

REACTIONS (3)
  - CARDIAC FAILURE CONGESTIVE [None]
  - HEART VALVE STENOSIS [None]
  - MYOCARDIAL INFARCTION [None]
